FAERS Safety Report 9171147 (Version 1)
Quarter: 2013Q1

REPORT INFORMATION
  Report Type: Spontaneous
  Country: DE (occurrence: None)
  Receive Date: 20130315
  Receipt Date: 20130315
  Transmission Date: 20140127
  Serious: Yes (Death)
  Sender: FDA-Public Use
  Company Number: DE-AGG-03-2013-0531

PATIENT
  Sex: Male

DRUGS (4)
  1. AGGRASTAT [Suspect]
     Indication: ACUTE MYOCARDIAL INFARCTION
     Dosage: HIGH BOLUS INTRAVENOUS (NOT OTHERWISE
     Route: 040
  2. LYTICS [Suspect]
  3. ASPIRIN [Suspect]
  4. HEPARIN [Suspect]

REACTIONS (2)
  - Gastric haemorrhage [None]
  - Cardiogenic shock [None]
